FAERS Safety Report 9532736 (Version 1)
Quarter: 2013Q1

REPORT INFORMATION
  Report Type: Spontaneous
  Country: US (occurrence: None)
  Receive Date: 20130329
  Receipt Date: 20130329
  Transmission Date: 20140127
  Serious: No
  Sender: FDA-Public Use
  Company Number: 1000041744

PATIENT
  Age: 78 Year
  Sex: Female

DRUGS (8)
  1. LINZESS (LINACLOTIDE) (290 MICROGRAM, CAPSULES) [Suspect]
     Indication: IRRITABLE BOWEL SYNDROME
     Route: 048
     Dates: start: 20130116
  2. PREMARIN (ESTROGENS CONJUGATED) (ESTROGENS CONJUGATED) [Concomitant]
  3. KLONOPIN [Concomitant]
  4. VITAMINS NOS (VITAMINS NOS) (VITAMINS NOS) [Concomitant]
  5. PROTONIX (PANTOPRAZOLE SODIUM SESQUIHYDRATE) (PANTOPRAZOLE SODIUM SESQUIHYDRATE) [Concomitant]
  6. TOPROL (METOPROLOL SUCCINATE) (METOPROLOL SUCCINATE) [Concomitant]
  7. COZAAR (LOSARTAN POTASSIUM) (LOSARTAN POTASSIUM) [Concomitant]
  8. PRAVACHOL (PRAVASTATIN SODIUM) (PRAVASTATIN SODIUM) [Concomitant]

REACTIONS (1)
  - Diarrhoea [None]
